FAERS Safety Report 9459910 (Version 2)
Quarter: 2013Q3

REPORT INFORMATION
  Report Type: Report from Study
  Country: FR (occurrence: FR)
  Receive Date: 20130815
  Receipt Date: 20130925
  Transmission Date: 20140515
  Serious: Yes (Hospitalization)
  Sender: FDA-Public Use
  Company Number: FR-PFIZER INC-2013233804

PATIENT
  Age: 72 Year
  Sex: Female
  Weight: 64 kg

DRUGS (2)
  1. ESTRACYT [Suspect]
     Indication: BREAST CANCER
     Dosage: 140 MG, 4X/DAY
     Route: 048
     Dates: start: 20130404, end: 20130410
  2. LOVENOX [Concomitant]
     Dosage: UNK
     Dates: start: 20130404, end: 20130410

REACTIONS (7)
  - Anaemia [Recovered/Resolved]
  - Renal failure acute [Recovered/Resolved]
  - Diarrhoea [Recovered/Resolved]
  - Thrombocytopenia [Recovered/Resolved]
  - Atrial fibrillation [Recovered/Resolved]
  - Sepsis [Recovered/Resolved]
  - Escherichia urinary tract infection [Recovered/Resolved]
